FAERS Safety Report 8922043 (Version 1)
Quarter: 2012Q4

REPORT INFORMATION
  Report Type: 
  Country: US (occurrence: US)
  Receive Date: 20121123
  Receipt Date: 20121123
  Transmission Date: 20130627
  Serious: Yes (Other)
  Sender: FDA-Public Use
  Company Number: US-PFIZER INC-2012292045

PATIENT
  Sex: Male

DRUGS (2)
  1. ZOLOFT [Suspect]
     Indication: DEPRESSION
     Dosage: 25 mg, 1x/day
     Route: 048
     Dates: start: 201209, end: 201209
  2. ZOLOFT [Suspect]
     Indication: ANXIETY
     Dosage: 50 mg, 1x/day
     Route: 048
     Dates: start: 201209, end: 201209

REACTIONS (4)
  - Renal disorder [Recovering/Resolving]
  - Oedema [Recovering/Resolving]
  - Nephropathy [Recovering/Resolving]
  - Swelling face [Recovering/Resolving]
